FAERS Safety Report 7625604-4 (Version None)
Quarter: 2011Q3

REPORT INFORMATION
  Report Type: 
  Country: None (occurrence: None)
  Receive Date: 20110713
  Receipt Date: 20110707
  Transmission Date: 20111222
  Serious: Yes (Hospitalization, Disabling, Other)
  Sender: FDA-Public Use
  Company Number: 2009SP040884

PATIENT
  Age: 36 Year
  Sex: Female
  Weight: 63.5036 kg

DRUGS (3)
  1. MARIJUANA [Concomitant]
  2. NUVARING [Suspect]
     Indication: CONTRACEPTION
     Dates: start: 20080101, end: 20090330
  3. OMEPRAZOLE [Concomitant]

REACTIONS (20)
  - NASOPHARYNGITIS [None]
  - PROTEIN S DECREASED [None]
  - CEREBROVASCULAR ACCIDENT [None]
  - IMPAIRED WORK ABILITY [None]
  - ANAEMIA [None]
  - RECTAL HAEMORRHAGE [None]
  - DIARRHOEA [None]
  - LOW DENSITY LIPOPROTEIN INCREASED [None]
  - PROTEIN C DECREASED [None]
  - SINUSITIS [None]
  - BRAIN INJURY [None]
  - HEMIPLEGIA [None]
  - BLOOD CHOLESTEROL INCREASED [None]
  - BRONCHITIS [None]
  - OVERWEIGHT [None]
  - PERIPHERAL VASCULAR DISORDER [None]
  - HEMIPARESIS [None]
  - FIBROMYALGIA [None]
  - ABDOMINAL PAIN UPPER [None]
  - HYPERLIPIDAEMIA [None]
